FAERS Safety Report 17106517 (Version 3)
Quarter: 2019Q4

REPORT INFORMATION
  Report Type: Spontaneous
  Country: FR (occurrence: FR)
  Receive Date: 20191203
  Receipt Date: 20191206
  Transmission Date: 20200122
  Serious: Yes (Life-Threatening, Hospitalization, Other)
  Sender: FDA-Public Use
  Company Number: FR-JNJFOC-20191120154

PATIENT
  Age: 28 Year
  Sex: Female

DRUGS (6)
  1. NAPROXEN. [Concomitant]
     Active Substance: NAPROXEN
     Indication: STILL^S DISEASE
     Route: 065
     Dates: start: 1998
  2. REMICADE [Suspect]
     Active Substance: INFLIXIMAB
     Indication: STILL^S DISEASE
     Dosage: FIRST INFUSION OF 200 MG (3 MG/KG) OF INFLIXIMAB
     Route: 042
     Dates: start: 200006
  3. TRIMETHOPRIM. [Concomitant]
     Active Substance: TRIMETHOPRIM
     Indication: ANTIFUNGAL PROPHYLAXIS
     Dosage: 6 CONSECUTIVE MONTHS
     Route: 065
  4. REMICADE [Suspect]
     Active Substance: INFLIXIMAB
     Dosage: SECOND INFUSION
     Route: 042
     Dates: start: 2000
  5. SULFAMETHOXAZOLE [Concomitant]
     Active Substance: SULFAMETHOXAZOLE
     Indication: ANTIFUNGAL PROPHYLAXIS
     Dosage: 6 CONSECUTIVE MONTHS
     Route: 065
  6. PREDNISONE. [Concomitant]
     Active Substance: PREDNISONE
     Indication: STILL^S DISEASE
     Route: 065

REACTIONS (8)
  - Off label use [Unknown]
  - Acute hepatitis B [Recovering/Resolving]
  - Jaundice [Recovering/Resolving]
  - Drug ineffective for unapproved indication [Unknown]
  - Contraindicated product administered [Unknown]
  - Malaise [Unknown]
  - Rash maculo-papular [Unknown]
  - Coma hepatic [Unknown]

NARRATIVE: CASE EVENT DATE: 2000
